FAERS Safety Report 7108605-4 (Version None)
Quarter: 2010Q4

REPORT INFORMATION
  Report Type: 
  Country: None (occurrence: None)
  Receive Date: 20101115
  Receipt Date: 20101115
  Transmission Date: 20110411
  Serious: No
  Sender: FDA-Public Use
  Company Number: None

PATIENT
  Age: 54 Year
  Sex: Female
  Weight: 56.6996 kg

DRUGS (1)
  1. RESTASIS [Suspect]
     Indication: DRY EYE
     Dosage: 1 DROP 2X DAY 0.4 ML EACH 1 DROP AM + PM IN EYES
     Dates: start: 20100920, end: 20101004

REACTIONS (4)
  - EYE IRRITATION [None]
  - FOREIGN BODY SENSATION IN EYES [None]
  - OCULAR HYPERAEMIA [None]
  - VISUAL IMPAIRMENT [None]
